FAERS Safety Report 21310612 (Version 3)
Quarter: 2022Q4

REPORT INFORMATION
  Report Type: Report from Study
  Country: CA (occurrence: CA)
  Receive Date: 20220909
  Receipt Date: 20221027
  Transmission Date: 20230112
  Serious: Yes (Hospitalization, Other)
  Sender: FDA-Public Use
  Company Number: CA-JNJFOC-20220914508

PATIENT
  Sex: Female

DRUGS (1)
  1. SIMPONI [Suspect]
     Active Substance: GOLIMUMAB
     Indication: Ankylosing spondylitis
     Route: 058

REACTIONS (6)
  - Cystitis [Unknown]
  - Fungal infection [Unknown]
  - Cerebrovascular accident [Unknown]
  - Seizure [Unknown]
  - Food allergy [Unknown]
  - Tooth infection [Unknown]

NARRATIVE: CASE EVENT DATE: 20220101
